FAERS Safety Report 4279840-8 (Version None)
Quarter: 2004Q1

REPORT INFORMATION
  Report Type: 
  Country: None (occurrence: None)
  Receive Date: 20040122
  Receipt Date: 20040119
  Transmission Date: 20041129
  Serious: Yes (Hospitalization, Other)
  Sender: FDA-Public Use
  Company Number: 200311404BVD

PATIENT
  Age: 58 Year
  Sex: Female
  Weight: 77 kg

DRUGS (6)
  1. AVELOX [Suspect]
     Indication: PNEUMONIA
     Dosage: 400 MG TOTAL DAILY ORAL
     Route: 048
     Dates: start: 20031113, end: 20031119
  2. ATACAND [Concomitant]
  3. FELOCOR [Concomitant]
  4. METOPROLOL SUCCINATE [Concomitant]
  5. INDIVINA [Concomitant]
  6. CONTRACEPTIVE [Concomitant]

REACTIONS (11)
  - ACUTE RESPIRATORY DISTRESS SYNDROME [None]
  - CONFUSIONAL STATE [None]
  - DEHYDRATION [None]
  - DIZZINESS [None]
  - DYSPHAGIA [None]
  - NEUROLOGICAL SYMPTOM [None]
  - ORTHOPNOEA [None]
  - PNEUMONITIS [None]
  - SPEECH DISORDER [None]
  - TACHYPNOEA [None]
  - WHITE BLOOD CELL COUNT INCREASED [None]
